FAERS Safety Report 19967613 (Version 1)
Quarter: 2021Q4

REPORT INFORMATION
  Report Type: Spontaneous
  Country: US (occurrence: US)
  Receive Date: 20211018
  Receipt Date: 20211018
  Transmission Date: 20220303
  Serious: Yes (unspecified)
  Sender: FDA-Public Use
  Company Number: None

PATIENT
  Age: 57 Year
  Sex: Male
  Weight: 89.4 kg

DRUGS (9)
  1. CISPLATIN [Suspect]
     Active Substance: CISPLATIN
     Indication: Cholangiocarcinoma
     Dosage: ?          OTHER FREQUENCY:EVERY 14 DAYS;
     Route: 042
     Dates: start: 20210416
  2. APREPITANT [Concomitant]
     Active Substance: APREPITANT
     Dates: start: 20210416
  3. PALONOSETRON. [Concomitant]
     Active Substance: PALONOSETRON HYDROCHLORIDE
     Dates: start: 20210416
  4. DEXAMETHASONE [Concomitant]
     Active Substance: DEXAMETHASONE
     Dates: start: 20210416
  5. PEGFILGRASTIM [Concomitant]
     Active Substance: PEGFILGRASTIM
     Dates: start: 20210910
  6. epoetin-epbx [Concomitant]
     Dates: start: 20210922
  7. GEMCITABINE [Concomitant]
     Active Substance: GEMCITABINE
     Dates: start: 20210416
  8. DIPHENHYDRAMINE [Concomitant]
     Active Substance: DIPHENHYDRAMINE
     Dates: start: 20211008
  9. TRAMADOL [Concomitant]
     Active Substance: TRAMADOL
     Dates: start: 20210922

REACTIONS (6)
  - Infusion related reaction [None]
  - Feeling hot [None]
  - Pruritus [None]
  - Pruritus [None]
  - Rash maculo-papular [None]
  - Rash [None]

NARRATIVE: CASE EVENT DATE: 20211008
